FAERS Safety Report 13402628 (Version 1)
Quarter: 2017Q2

REPORT INFORMATION
  Report Type: Report from Study
  Country: US (occurrence: US)
  Receive Date: 20170404
  Receipt Date: 20170404
  Transmission Date: 20170830
  Serious: Yes (Death, Hospitalization)
  Sender: FDA-Public Use
  Company Number: US-ACTELION-A-US2016-134536

PATIENT
  Age: 75 Year
  Sex: Female
  Weight: 60.32 kg

DRUGS (3)
  1. TYVASO [Concomitant]
     Active Substance: TREPROSTINIL
     Dosage: UNK
     Dates: end: 2017
  2. OPSUMIT [Suspect]
     Active Substance: MACITENTAN
     Indication: PULMONARY ARTERIAL HYPERTENSION
     Dosage: 10 MG, QD
     Route: 048
     Dates: start: 20150121
  3. ADCIRCA [Concomitant]
     Active Substance: TADALAFIL

REACTIONS (14)
  - Pulmonary hypertension [Unknown]
  - Head injury [Unknown]
  - Dry mouth [Unknown]
  - Head discomfort [Unknown]
  - Fatigue [Unknown]
  - Death [Fatal]
  - Internal haemorrhage [Unknown]
  - Diarrhoea [Unknown]
  - Fluid retention [Unknown]
  - Oedema peripheral [Unknown]
  - Epistaxis [Unknown]
  - Oxygen consumption increased [Unknown]
  - Vomiting [Unknown]
  - Dyspnoea [Unknown]

NARRATIVE: CASE EVENT DATE: 20170321
